FAERS Safety Report 8763776 (Version 1)
Quarter: 2012Q4

REPORT INFORMATION
  Report Type: 
  Country: KR (occurrence: KR)
  Receive Date: 20120831
  Receipt Date: 20120831
  Transmission Date: 20130627
  Serious: Yes (Other)
  Sender: FDA-Public Use
  Company Number: PHHY2012KR074677

PATIENT
  Age: 68 Year
  Sex: Female

DRUGS (1)
  1. ZOMETA [Suspect]
     Indication: MULTIPLE MYELOMA
     Dosage: UNK UKN, UNK
     Route: 042

REACTIONS (5)
  - Osteonecrosis of jaw [Unknown]
  - Exposed bone in jaw [Recovered/Resolved]
  - Bone pain [Recovered/Resolved]
  - Purulent discharge [Recovered/Resolved]
  - Bone lesion [Recovered/Resolved]
